FAERS Safety Report 20226266 (Version 1)
Quarter: 2021Q4

REPORT INFORMATION
  Report Type: Other
  Country: US (occurrence: None)
  Receive Date: 20211224
  Receipt Date: 20211224
  Transmission Date: 20220303
  Serious: Yes (Other)
  Sender: FDA-Public Use
  Company Number: US-ROCHE-2981668

PATIENT
  Sex: Female

DRUGS (19)
  1. ACTEMRA [Suspect]
     Active Substance: TOCILIZUMAB
     Indication: Giant cell arteritis
     Dosage: INJECT 162MG SUBCUTANEOUSLY EVERY WEEK
     Route: 058
  2. ACTEMRA [Suspect]
     Active Substance: TOCILIZUMAB
  3. MAGNESIUM [Concomitant]
     Active Substance: MAGNESIUM
  4. VITAMIN C [Concomitant]
     Active Substance: ASCORBIC ACID
  5. VITAMIN B COMPLEX [Concomitant]
     Active Substance: CYANOCOBALAMIN\DEXPANTHENOL\NIACINAMIDE\PYRIDOXINE HYDROCHLORIDE\RIBOFLAVIN 5^-PHOSPHATE SODIUM\THIA
  6. VITAMIN A [Concomitant]
     Active Substance: VITAMIN A
  7. ROSUVASTATIN [Concomitant]
     Active Substance: ROSUVASTATIN
  8. AMLODIPINE [Concomitant]
     Active Substance: AMLODIPINE BESYLATE
  9. CARVEDILOL [Concomitant]
     Active Substance: CARVEDILOL
  10. HYDRALAZINE [Concomitant]
     Active Substance: HYDRALAZINE HYDROCHLORIDE
  11. PREDNISONE [Concomitant]
     Active Substance: PREDNISONE
  12. ASPIRIN [Concomitant]
     Active Substance: ASPIRIN
  13. PROTONIX [Concomitant]
     Active Substance: PANTOPRAZOLE SODIUM
  14. FOSAMAX [Concomitant]
     Active Substance: ALENDRONATE SODIUM
  15. CALCIUM [Concomitant]
     Active Substance: CALCIUM
  16. NIFEDIPINE [Concomitant]
     Active Substance: NIFEDIPINE
  17. CLONIDINE [Concomitant]
     Active Substance: CLONIDINE
  18. POTASSIUM [Concomitant]
     Active Substance: POTASSIUM
  19. ZINC [Concomitant]
     Active Substance: ZINC

REACTIONS (2)
  - Aortic dissection [Unknown]
  - Stress [Unknown]
